FAERS Safety Report 17072141 (Version 2)
Quarter: 2020Q1

REPORT INFORMATION
  Report Type: Report from Study
  Country: NL (occurrence: NL)
  Receive Date: 20191125
  Receipt Date: 20200311
  Transmission Date: 20200409
  Serious: Yes (Other)
  Sender: FDA-Public Use
  Company Number: NVSC2019NL042489

PATIENT
  Age: 46 Year
  Sex: Female

DRUGS (1)
  1. SANDOSTATIN LAR DEPOT [Suspect]
     Active Substance: OCTREOTIDE ACETATE
     Indication: HYPOGLYCAEMIA
     Dosage: 20 MG / 2 ML, Q2W
     Route: 030

REACTIONS (6)
  - Nausea [Not Recovered/Not Resolved]
  - Eating disorder [Unknown]
  - Obstruction gastric [Unknown]
  - Dysphagia [Unknown]
  - Product use in unapproved indication [Unknown]
  - Inappropriate schedule of product administration [Unknown]

NARRATIVE: CASE EVENT DATE: 20191101
